FAERS Safety Report 11533521 (Version 1)
Quarter: 2015Q3

REPORT INFORMATION
  Report Type: Spontaneous
  Country: US (occurrence: US)
  Receive Date: 20150921
  Receipt Date: 20150921
  Transmission Date: 20151125
  Serious: Yes (Death, Life-Threatening, Hospitalization)
  Sender: FDA-Public Use
  Company Number: US-SIGMA-TAU US-2014STPI000594

PATIENT

DRUGS (1)
  1. MATULANE [Suspect]
     Active Substance: PROCARBAZINE HYDROCHLORIDE
     Indication: HODGKIN^S DISEASE
     Dosage: 150 MG, X2
     Route: 048
     Dates: start: 20140930, end: 20141001

REACTIONS (4)
  - Metastases to central nervous system [Fatal]
  - Sepsis [Unknown]
  - Disease progression [Fatal]
  - Multi-organ failure [Unknown]

NARRATIVE: CASE EVENT DATE: 2014
